FAERS Safety Report 8604809-X (Version None)
Quarter: 2012Q3

REPORT INFORMATION
  Report Type: 
  Country: None (occurrence: None)
  Receive Date: 20120820
  Receipt Date: 20120810
  Transmission Date: 20120928
  Serious: Yes (Other)
  Sender: FDA-Public Use
  Company Number: GB-JNJFOC-20120709119

PATIENT
  Age: 32 Year
  Sex: Male

DRUGS (2)
  1. RISPERDAL CONSTA [Suspect]
     Route: 030
  2. RISPERDAL CONSTA [Suspect]
     Indication: PRODUCT USED FOR UNKNOWN INDICATION
     Route: 030

REACTIONS (8)
  - HYPOKINESIA [None]
  - CONFUSIONAL STATE [None]
  - FEELING ABNORMAL [None]
  - VISION BLURRED [None]
  - TIC [None]
  - MUSCLE TWITCHING [None]
  - SOCIAL PROBLEM [None]
  - FATIGUE [None]
